FAERS Safety Report 22029798 (Version 2)
Quarter: 2023Q1

REPORT INFORMATION
  Report Type: Report from Study
  Country: EG (occurrence: EG)
  Receive Date: 20230223
  Receipt Date: 20230306
  Transmission Date: 20230418
  Serious: Yes (Other)
  Sender: FDA-Public Use
  Company Number: EG-002147023-NVSC2023EG038298

PATIENT
  Age: 29 Year
  Sex: Male

DRUGS (9)
  1. COSENTYX [Suspect]
     Active Substance: SECUKINUMAB
     Indication: Ankylosing spondylitis
     Dosage: 1 DOSAGE FORM, QMO
     Route: 065
     Dates: start: 202202
  2. COSENTYX [Suspect]
     Active Substance: SECUKINUMAB
     Dosage: UNK
     Route: 065
  3. ALPHINTERN [Concomitant]
     Indication: Cutaneous symptom
     Dosage: 2 DOSAGE FORM, QD (2 TABS IN MORNING AND 2 TABS AT NIGHT (BEFORE MEALS))
     Route: 065
     Dates: start: 202202, end: 202203
  4. ALPHINTERN [Concomitant]
     Dosage: UNK
     Route: 065
     Dates: start: 202302
  5. LEVOFLOXACIN [Concomitant]
     Active Substance: LEVOFLOXACIN
     Indication: Cutaneous symptom
     Dosage: 1 DOSAGE FORM, QD (AFTER LUNCH) STOPPED AFTER FIVE DAYS FROM ADMINISTRATION (7- 10 DAYS)
     Route: 065
  6. DICLOFENAC [Concomitant]
     Active Substance: DICLOFENAC
     Indication: Analgesic therapy
     Dosage: UNK (2 OR 3 YEARS AGO)
     Route: 065
     Dates: start: 2013
  7. DICLOFENAC SODIUM [Concomitant]
     Active Substance: DICLOFENAC SODIUM
     Indication: Analgesic therapy
     Dosage: 3 DOSAGE FORM, QD
     Route: 065
  8. DICLOFENAC SODIUM [Concomitant]
     Active Substance: DICLOFENAC SODIUM
     Dosage: UNK, PRN (AFTER COMPLIANCE TO COSENTYX : AS NEEDED (MAX. DOSE EVERY 8 HRS))
     Route: 065
  9. FUCIDIN [Concomitant]
     Active Substance: FUSIDATE SODIUM
     Indication: Skin disorder
     Dosage: UNK, BID
     Route: 065

REACTIONS (7)
  - Spondylitis [Recovered/Resolved]
  - Movement disorder [Recovered/Resolved]
  - Arthralgia [Recovered/Resolved]
  - C-reactive protein increased [Unknown]
  - Product dispensing issue [Recovered/Resolved]
  - Product dose omission issue [Unknown]
  - Inappropriate schedule of product administration [Unknown]

NARRATIVE: CASE EVENT DATE: 20220201
